FAERS Safety Report 18628217 (Version 1)
Quarter: 2020Q4

REPORT INFORMATION
  Report Type: Spontaneous
  Country: US (occurrence: US)
  Receive Date: 20201216
  Receipt Date: 20201216
  Transmission Date: 20210114
  Serious: Yes (Hospitalization, Other)
  Sender: FDA-Public Use
  Company Number: None

PATIENT
  Age: 91 Year
  Sex: Male
  Weight: 101 kg

DRUGS (1)
  1. HYDRALAZINE (HYDRALAZINE HCL 20MG/ML INJ ) [Suspect]
     Active Substance: HYDRALAZINE HYDROCHLORIDE
     Indication: HYPERTENSION
     Route: 042
     Dates: start: 20200714, end: 20200720

REACTIONS (9)
  - Hepatic enzyme increased [None]
  - Haemochromatosis [None]
  - Hyperbilirubinaemia [None]
  - Jaundice [None]
  - Hepatitis [None]
  - Pulse absent [None]
  - International normalised ratio abnormal [None]
  - Transaminases increased [None]
  - Unresponsive to stimuli [None]

NARRATIVE: CASE EVENT DATE: 20200910
